FAERS Safety Report 17802529 (Version 2)
Quarter: 2020Q2

REPORT INFORMATION
  Report Type: Spontaneous
  Country: TW (occurrence: TW)
  Receive Date: 20200519
  Receipt Date: 20200601
  Transmission Date: 20200714
  Serious: Yes (Hospitalization, Other)
  Sender: FDA-Public Use
  Company Number: TW-GILEAD-2020-0467527

PATIENT
  Age: 68 Year
  Sex: Male

DRUGS (2)
  1. EPCLUSA [Suspect]
     Active Substance: SOFOSBUVIR\VELPATASVIR
     Indication: PRODUCT USED FOR UNKNOWN INDICATION
     Dosage: 1 DOSAGE FORM, QD
     Route: 065
     Dates: start: 20200204, end: 20200428
  2. EPCLUSA [Suspect]
     Active Substance: SOFOSBUVIR\VELPATASVIR
     Dosage: 1 DOSAGE FORM, QD
     Route: 065
     Dates: start: 20200507, end: 20200512

REACTIONS (2)
  - Product prescribing error [Recovered/Resolved]
  - Cellulitis [Recovering/Resolving]
